FAERS Safety Report 22259645 (Version 1)
Quarter: 2023Q2

REPORT INFORMATION
  Report Type: Spontaneous
  Country: US (occurrence: None)
  Receive Date: 20230426
  Receipt Date: 20230426
  Transmission Date: 20230721
  Serious: Yes (Hospitalization, Disabling)
  Sender: FDA-Public Use
  Company Number: None

PATIENT
  Age: 45 Year
  Sex: 0
  Weight: 46.8 kg

DRUGS (1)
  1. EVENITY [Suspect]
     Active Substance: ROMOSOZUMAB-AQQG
     Indication: Osteoporosis
     Dates: start: 20201001, end: 20210915

REACTIONS (28)
  - Cerebrovascular accident [None]
  - Systemic inflammatory response syndrome [None]
  - Hemiparaesthesia [None]
  - Fatigue [None]
  - Muscle atrophy [None]
  - Skin atrophy [None]
  - Tinnitus [None]
  - Contusion [None]
  - Arrhythmia [None]
  - Dyspnoea [None]
  - Flatulence [None]
  - Dysphagia [None]
  - Headache [None]
  - Blood pressure fluctuation [None]
  - Dizziness [None]
  - Dysarthria [None]
  - Depressed level of consciousness [None]
  - Tremor [None]
  - Weight decreased [None]
  - Overdose [None]
  - Insurance issue [None]
  - Capillary fragility [None]
  - Injection site atrophy [None]
  - Urticaria [None]
  - Injection site pain [None]
  - Injection site erythema [None]
  - Injection site swelling [None]
  - Ehlers-Danlos syndrome [None]

NARRATIVE: CASE EVENT DATE: 20210228
